FAERS Safety Report 5447687-2 (Version None)
Quarter: 2007Q3

REPORT INFORMATION
  Report Type: 
  Country: None (occurrence: None)
  Receive Date: 20070910
  Receipt Date: 20070829
  Transmission Date: 20080115
  Serious: Yes (Death, Life-Threatening, Hospitalization, Disabling, Other)
  Sender: FDA-Public Use
  Company Number: AE-MERCK-0708USA05368

PATIENT
  Age: 57 Year
  Sex: Male
  Weight: 80 kg

DRUGS (6)
  1. CANCIDAS [Suspect]
     Indication: EVIDENCE BASED TREATMENT
     Route: 042
     Dates: start: 20061230, end: 20070113
  2. MEROPENEM [Concomitant]
     Indication: PNEUMONIA
     Route: 065
     Dates: start: 20061226, end: 20070113
  3. MEROPENEM [Concomitant]
     Indication: SEPSIS
     Route: 065
     Dates: start: 20061226, end: 20070113
  4. LINEZOLID [Concomitant]
     Indication: PNEUMONIA
     Route: 065
     Dates: start: 20061224, end: 20070111
  5. TOBRAMYCIN [Concomitant]
     Indication: SEPSIS
     Route: 065
     Dates: start: 20061228, end: 20061231
  6. TOBRAMYCIN [Concomitant]
     Indication: PNEUMONIA
     Route: 065
     Dates: start: 20061228, end: 20061231

REACTIONS (5)
  - DISSEMINATED INTRAVASCULAR COAGULATION [None]
  - HEPATIC FAILURE [None]
  - OESOPHAGEAL VARICES HAEMORRHAGE [None]
  - PNEUMONIA [None]
  - RENAL FAILURE ACUTE [None]
